FAERS Safety Report 7353773-2 (Version None)
Quarter: 2011Q1

REPORT INFORMATION
  Report Type: 
  Country: None (occurrence: None)
  Receive Date: 20110315
  Receipt Date: 20110308
  Transmission Date: 20110831
  Serious: Yes (Hospitalization)
  Sender: FDA-Public Use
  Company Number: US-US-EMD SERONO, INC.-7046688

PATIENT
  Sex: Female
  Weight: 2.3 kg

DRUGS (1)
  1. REBIF [Suspect]
     Route: 064

REACTIONS (4)
  - PREMATURE BABY [None]
  - NEONATAL INFECTION [None]
  - JAUNDICE NEONATAL [None]
  - DRUG EXPOSURE DURING PREGNANCY [None]
